FAERS Safety Report 16295084 (Version 1)
Quarter: 2019Q2

REPORT INFORMATION
  Report Type: Spontaneous
  Country: US (occurrence: US)
  Receive Date: 20190404
  Receipt Date: 20190404
  Transmission Date: 20190711
  Serious: Yes (Hospitalization)
  Sender: FDA-Public Use
  Company Number: None

PATIENT
  Age: 64 Year
  Sex: Female
  Weight: 74.2 kg

DRUGS (4)
  1. MERCAPTOPURINE. [Suspect]
     Active Substance: MERCAPTOPURINE
     Dates: end: 20180911
  2. CYCLOPHOSPHAMIDE. [Suspect]
     Active Substance: CYCLOPHOSPHAMIDE
     Dates: end: 20180910
  3. CYTARABINE. [Suspect]
     Active Substance: CYTARABINE
     Dates: end: 20180911
  4. METHOTREXATE. [Suspect]
     Active Substance: METHOTREXATE
     Dates: end: 20180910

REACTIONS (7)
  - Gastritis [None]
  - Intestinal perforation [None]
  - Pancreatitis [None]
  - Vomiting [None]
  - Gastrooesophageal reflux disease [None]
  - Condition aggravated [None]
  - Nausea [None]

NARRATIVE: CASE EVENT DATE: 20180912
